FAERS Safety Report 11266927 (Version 1)
Quarter: 2015Q3

REPORT INFORMATION
  Report Type: Spontaneous
  Country: US (occurrence: US)
  Receive Date: 20150713
  Receipt Date: 20150713
  Transmission Date: 20151125
  Serious: Yes (Other)
  Sender: FDA-Public Use
  Company Number: US-MPIJNJ-2013-03661

PATIENT

DRUGS (2)
  1. VELCADE [Suspect]
     Active Substance: BORTEZOMIB
     Indication: PLASMA CELL MYELOMA
     Dosage: 3 MG, CYCLIC
     Route: 058
     Dates: start: 20130401
  2. DECADRON [Suspect]
     Active Substance: DEXAMETHASONE
     Indication: PLASMA CELL MYELOMA
     Dosage: 40 MG, 1/WEEK
     Route: 048
     Dates: start: 20130401

REACTIONS (17)
  - White blood cell count increased [Unknown]
  - Skin discomfort [Unknown]
  - Pain [Unknown]
  - Oedema peripheral [Recovered/Resolved]
  - Dysgeusia [Unknown]
  - Feeding disorder [Unknown]
  - Swelling [Unknown]
  - Pain [Unknown]
  - Back pain [Unknown]
  - Neutrophil count decreased [Unknown]
  - Fluid retention [Unknown]
  - Pain [Unknown]
  - Weight decreased [Unknown]
  - Fatigue [Unknown]
  - Vomiting [Unknown]
  - Dyspnoea [Unknown]
  - Nausea [Unknown]

NARRATIVE: CASE EVENT DATE: 20130404
